FAERS Safety Report 4855878-4 (Version None)
Quarter: 2005Q4

REPORT INFORMATION
  Report Type: 
  Country: None (occurrence: None)
  Receive Date: 20051216
  Receipt Date: 20051208
  Transmission Date: 20060501
  Serious: Yes (Other)
  Sender: FDA-Public Use
  Company Number: 2005PK02401

PATIENT
  Age: 72 Year
  Sex: Male

DRUGS (5)
  1. SEROQUEL [Suspect]
     Route: 048
  2. REMINYL [Interacting]
  3. DIPIPERON [Interacting]
     Route: 048
  4. AURORIX [Interacting]
     Route: 048
  5. BROMAZEPAM [Interacting]

REACTIONS (5)
  - ANAEMIA [None]
  - APATHY [None]
  - DRUG INTERACTION [None]
  - RED BLOOD CELL SEDIMENTATION RATE INCREASED [None]
  - RENAL FAILURE [None]
